FAERS Safety Report 7244638-5 (Version None)
Quarter: 2011Q1

REPORT INFORMATION
  Report Type: 
  Country: None (occurrence: None)
  Receive Date: 20110125
  Receipt Date: 20110118
  Transmission Date: 20110831
  Serious: Yes (Death)
  Sender: FDA-Public Use
  Company Number: US-GENENTECH-310796

PATIENT
  Sex: Male

DRUGS (1)
  1. RITUXAN [Suspect]
     Indication: NON-HODGKIN'S LYMPHOMA
     Dosage: UNK
     Route: 042
     Dates: start: 20100902, end: 20101001

REACTIONS (5)
  - ARTHRALGIA [None]
  - FATIGUE [None]
  - DEATH [None]
  - CONFUSIONAL STATE [None]
  - BALANCE DISORDER [None]
